FAERS Safety Report 4792206-7 (Version None)
Quarter: 2005Q4

REPORT INFORMATION
  Report Type: 
  Country: None (occurrence: None)
  Receive Date: 20051007
  Receipt Date: 20050929
  Transmission Date: 20060501
  Serious: Yes (Hospitalization)
  Sender: FDA-Public Use
  Company Number: US-MERCK-0510USA00676

PATIENT
  Age: 71 Year
  Sex: Male
  Weight: 93 kg

DRUGS (6)
  1. VIOXX [Suspect]
     Route: 048
     Dates: start: 20000119, end: 20000126
  2. MEDROL [Concomitant]
     Route: 065
  3. TIAZAC [Concomitant]
     Route: 065
  4. KLOR-CON [Concomitant]
     Route: 065
  5. CROMOLYN SODIUM [Concomitant]
     Route: 065
  6. [THERAPY UNSPECIFIED] [Concomitant]
     Route: 065

REACTIONS (2)
  - ANGINA PECTORIS [None]
  - MYOCARDIAL INFARCTION [None]
